FAERS Safety Report 5473599-4 (Version None)
Quarter: 2007Q4

REPORT INFORMATION
  Report Type: 
  Country: None (occurrence: None)
  Receive Date: 20071001
  Receipt Date: 20070920
  Transmission Date: 20080405
  Serious: Yes (Life-Threatening, Hospitalization)
  Sender: FDA-Public Use
  Company Number: PL-BAXTER-2007BH007818

PATIENT
  Age: 84 Year
  Sex: Female
  Weight: 76 kg

DRUGS (1)
  1. SODIUM CHLORIDE 0.9% IN PLASTIC CONTAINER [Suspect]
     Indication: PNEUMOCONIOSIS
     Route: 042
     Dates: start: 20070808, end: 20070808

REACTIONS (4)
  - CYANOSIS [None]
  - DYSPNOEA [None]
  - TREMOR [None]
  - VOMITING [None]
